FAERS Safety Report 7128515-6 (Version None)
Quarter: 2010Q4

REPORT INFORMATION
  Report Type: 
  Country: None (occurrence: None)
  Receive Date: 20101130
  Receipt Date: 20101119
  Transmission Date: 20110411
  Serious: No
  Sender: FDA-Public Use
  Company Number: US-JNJFOC-20101107672

PATIENT
  Sex: Female
  Weight: 88 kg

DRUGS (3)
  1. FENTANYL [Suspect]
     Indication: ARTHRALGIA
     Route: 062
  2. FENTANYL-100 [Suspect]
     Indication: ARTHRALGIA
     Dosage: NDC# 0781-7241-55
     Route: 062
  3. MANY OTHER UNSPECIFIED MEDICATIONS [Concomitant]
     Route: 065

REACTIONS (7)
  - ABDOMINAL PAIN UPPER [None]
  - CONSTIPATION [None]
  - FATIGUE [None]
  - FEELING ABNORMAL [None]
  - PRODUCT ADHESION ISSUE [None]
  - VOMITING [None]
  - WRONG TECHNIQUE IN DRUG USAGE PROCESS [None]
